FAERS Safety Report 24177587 (Version 1)
Quarter: 2024Q3

REPORT INFORMATION
  Report Type: Spontaneous
  Country: US (occurrence: US)
  Receive Date: 20240806
  Receipt Date: 20240806
  Transmission Date: 20241017
  Serious: Yes (Life-Threatening, Hospitalization)
  Sender: STRIDES
  Company Number: US-STRIDES ARCOLAB LIMITED-2024SP009680

PATIENT
  Age: 63 Year
  Sex: Female

DRUGS (2)
  1. METHOTREXATE [Suspect]
     Active Substance: METHOTREXATE
     Indication: Rheumatoid arthritis
     Dosage: 2.5 MILLIGRAM; 5 TABLETS IN THE MORNING AND 5 TABLETS IN THE EVENING ONCE WEEKLY
     Route: 065
  2. FOLIC ACID [Suspect]
     Active Substance: FOLIC ACID
     Indication: Rheumatoid arthritis
     Dosage: UNK
     Route: 065

REACTIONS (5)
  - Hepatic steatosis [Recovered/Resolved]
  - Pancytopenia [Recovered/Resolved]
  - Toxicity to various agents [Recovered/Resolved]
  - Urinary tract infection [Unknown]
  - Oral candidiasis [Unknown]
